FAERS Safety Report 10635753 (Version 1)
Quarter: 2014Q4

REPORT INFORMATION
  Report Type: Spontaneous
  Country: US (occurrence: US)
  Receive Date: 20141205
  Receipt Date: 20141205
  Transmission Date: 20150529
  Serious: Yes (Congenital Anomaly, Other)
  Sender: FDA-Public Use
  Company Number: US-ELI_LILLY_AND_COMPANY-US201411010081

PATIENT

DRUGS (1)
  1. PROZAC [Suspect]
     Active Substance: FLUOXETINE HYDROCHLORIDE
     Indication: PRODUCT USED FOR UNKNOWN INDICATION
     Dosage: UNK UNK, UNKNOWN
     Route: 064

REACTIONS (7)
  - Respiratory syncytial virus infection [Unknown]
  - Exposure during pregnancy [Recovered/Resolved]
  - Sleep apnoea syndrome [Unknown]
  - Supraventricular tachycardia [Unknown]
  - Asthma [Unknown]
  - Upper respiratory tract infection [Unknown]
  - Atrial septal defect [Recovered/Resolved]
